FAERS Safety Report 9004649 (Version 1)
Quarter: 2013Q1

REPORT INFORMATION
  Report Type: Spontaneous
  Country: US (occurrence: None)
  Receive Date: 20130103
  Receipt Date: 20130103
  Transmission Date: 20140127
  Serious: Yes (Other)
  Sender: FDA-Public Use
  Company Number: None

PATIENT
  Age: 49 Year
  Sex: Female
  Weight: 58.97 kg

DRUGS (1)
  1. PRAMIPEXOLE [Suspect]
     Indication: RESTLESS LEGS SYNDROME
     Dosage: .125 TO .50   DAILY  PO
     Route: 048
     Dates: start: 20100101, end: 20121001

REACTIONS (6)
  - Impulse-control disorder [None]
  - Compulsive shopping [None]
  - Restless legs syndrome [None]
  - Condition aggravated [None]
  - Drug ineffective [None]
  - Frustration [None]
